FAERS Safety Report 12335450 (Version 1)
Quarter: 2016Q2

REPORT INFORMATION
  Report Type: Spontaneous
  Country: FI (occurrence: FI)
  Receive Date: 20160504
  Receipt Date: 20160504
  Transmission Date: 20160815
  Serious: Yes (Disabling)
  Sender: FDA-Public Use
  Company Number: FI-GILEAD-2016-0211892

PATIENT
  Age: 59 Year
  Sex: Male

DRUGS (3)
  1. KALEORID [Concomitant]
     Active Substance: POTASSIUM CHLORIDE
     Dosage: UNK
     Route: 048
  2. NEBUPENT [Concomitant]
     Active Substance: PENTAMIDINE ISETHIONATE
     Route: 055
  3. ZYDELIG [Suspect]
     Active Substance: IDELALISIB
     Indication: CHRONIC LYMPHOCYTIC LEUKAEMIA
     Dosage: 300 MG, UNK
     Route: 048
     Dates: start: 20151027

REACTIONS (2)
  - Off label use [Recovered/Resolved]
  - Genital herpes simplex [Unknown]

NARRATIVE: CASE EVENT DATE: 201511
